FAERS Safety Report 4704754-6 (Version None)
Quarter: 2005Q2

REPORT INFORMATION
  Report Type: 
  Country: None (occurrence: None)
  Receive Date: 20050630
  Receipt Date: 20050617
  Transmission Date: 20051028
  Serious: Yes (Hospitalization, Other)
  Sender: FDA-Public Use
  Company Number: KII-2005-0017171

PATIENT
  Age: 35 Year
  Sex: Female

DRUGS (10)
  1. MORPHINE SULFATE [Suspect]
     Dosage: ORAL
     Route: 048
  2. EFFEXOR - SLOW RELEASE (VENLAFAXINE HYDROCHLORIDE) [Concomitant]
  3. BENZODIAZEPINE DERIVATIVES [Concomitant]
  4. OTHER GASTROINTESTINAL PREPARATION [Concomitant]
  5. LAXATIVES [Concomitant]
  6. GLYBURIDE [Concomitant]
  7. SERUMLIPIDREDUCING AGENTS [Concomitant]
  8. METHOCARBAMOL [Concomitant]
  9. NIACIN [Concomitant]
  10. ORAL ANTIDIABETICS [Concomitant]

REACTIONS (15)
  - AGITATION [None]
  - BACTERIA STOOL IDENTIFIED [None]
  - BLOOD CREATINE PHOSPHOKINASE INCREASED [None]
  - BLOOD GLUCOSE INCREASED [None]
  - CLOSTRIDIAL INFECTION [None]
  - DEPRESSED LEVEL OF CONSCIOUSNESS [None]
  - DIARRHOEA [None]
  - HYPERVENTILATION [None]
  - OVERDOSE [None]
  - PNEUMONIA ASPIRATION [None]
  - PO2 ABNORMAL [None]
  - POSTURING [None]
  - RESPIRATORY ALKALOSIS [None]
  - SINUS TACHYCARDIA [None]
  - URINE ABNORMALITY [None]
